FAERS Safety Report 22619252 (Version 2)
Quarter: 2024Q2

REPORT INFORMATION
  Report Type: Spontaneous
  Country: US (occurrence: US)
  Receive Date: 20230620
  Receipt Date: 20240621
  Transmission Date: 20240715
  Serious: No
  Sender: FDA-Public Use
  Company Number: US-AUROBINDO-AUR-APL-2023-037642

PATIENT
  Sex: Female
  Weight: 56.689 kg

DRUGS (1)
  1. ZOLPIDEM TARTRATE [Suspect]
     Active Substance: ZOLPIDEM TARTRATE
     Indication: Insomnia
     Dosage: 1 DOSAGE FORM, ONCE A DAY(AT NIGHT)

REACTIONS (5)
  - Anxiety [Unknown]
  - Hyperhidrosis [Unknown]
  - Somnambulism [Unknown]
  - Drug ineffective [Unknown]
  - Product substitution issue [Unknown]
